FAERS Safety Report 4277554-1 (Version None)
Quarter: 2004Q1

REPORT INFORMATION
  Report Type: 
  Country: None (occurrence: None)
  Receive Date: 20040121
  Receipt Date: 20040106
  Transmission Date: 20041129
  Serious: Yes (Other)
  Sender: FDA-Public Use
  Company Number: 2003115132

PATIENT
  Age: 53 Year
  Sex: Female
  Weight: 81.6475 kg

DRUGS (5)
  1. SUDAFED 12 HOUR [Suspect]
     Indication: NASOPHARYNGITIS
     Dosage: 2 TABLETS Q 12 HRS, ORAL
     Route: 048
     Dates: start: 20030401, end: 20031001
  2. SUDAFED 12 HOUR [Suspect]
     Indication: NASOPHARYNGITIS
     Dosage: 2 TABLETS Q 12 HRS, ORAL
     Route: 048
     Dates: start: 20031101, end: 20031101
  3. OMEPRAZOLE [Concomitant]
  4. DILTIAZEM HYDROCHLORIDE [Concomitant]
  5. VICODIN [Concomitant]

REACTIONS (4)
  - BLISTER [None]
  - DRUG ERUPTION [None]
  - EPIDERMAL NECROSIS [None]
  - NERVE INJURY [None]
